FAERS Safety Report 12717154 (Version 1)
Quarter: 2016Q3

REPORT INFORMATION
  Report Type: Spontaneous
  Country: CH (occurrence: CH)
  Receive Date: 20160906
  Receipt Date: 20160906
  Transmission Date: 20161109
  Serious: Yes (Congenital Anomaly)
  Sender: FDA-Public Use
  Company Number: CH-GLAXOSMITHKLINE-CH2016GSK127057

PATIENT

DRUGS (1)
  1. ACITRETIN. [Suspect]
     Active Substance: ACITRETIN
     Indication: PSORIASIS
     Dosage: 10 MG, QD

REACTIONS (2)
  - Trisomy 18 [Unknown]
  - Exposure via father [Unknown]

NARRATIVE: CASE EVENT DATE: 201511
